FAERS Safety Report 18171936 (Version 1)
Quarter: 2020Q3

REPORT INFORMATION
  Report Type: Spontaneous
  Country: GB (occurrence: GB)
  Receive Date: 20200819
  Receipt Date: 20200819
  Transmission Date: 20201103
  Serious: Yes (Disabling)
  Sender: FDA-Public Use
  Company Number: GB-ASCEND THERAPEUTICS US, LLC-2088810

PATIENT
  Age: 53 Year
  Sex: Female
  Weight: 81 kg

DRUGS (3)
  1. ESTROGEL [Suspect]
     Active Substance: ESTRADIOL
  2. OESTRODOSE (ESTRADIOL)?INDICATION FOR USE: PERIMENOPAUSE [Suspect]
     Active Substance: ESTRADIOL
     Route: 062
     Dates: start: 20200601, end: 20200616
  3. ESTROGEL [Suspect]
     Active Substance: ESTRADIOL
     Indication: MENOPAUSE
     Route: 062
     Dates: start: 20200601, end: 20200616

REACTIONS (4)
  - Self esteem decreased [Unknown]
  - Product substitution issue [Unknown]
  - Depressed mood [Recovered/Resolved]
  - Apathy [Unknown]

NARRATIVE: CASE EVENT DATE: 20200603
